FAERS Safety Report 6769843-3 (Version None)
Quarter: 2010Q2

REPORT INFORMATION
  Report Type: 
  Country: None (occurrence: None)
  Receive Date: 20100520
  Receipt Date: 20091109
  Transmission Date: 20101027
  Serious: Yes (Other)
  Sender: FDA-Public Use
  Company Number: 2009296027

PATIENT
  Age: 52 Year
  Sex: Female
  Weight: 71.2 kg

DRUGS (5)
  1. PROVERA [Suspect]
     Indication: HORMONE REPLACEMENT THERAPY
     Dosage: , ORAL : 2.5 MG, ORAL : 10 MG, ORAL
     Route: 048
     Dates: start: 19750201, end: 19750401
  2. PROVERA [Suspect]
     Indication: HORMONE REPLACEMENT THERAPY
     Dosage: , ORAL : 2.5 MG, ORAL : 10 MG, ORAL
     Route: 048
     Dates: start: 19920101, end: 19940101
  3. PROVERA [Suspect]
     Indication: HORMONE REPLACEMENT THERAPY
     Dosage: , ORAL : 2.5 MG, ORAL : 10 MG, ORAL
     Route: 048
     Dates: start: 19940101, end: 19960601
  4. PREMARIN [Suspect]
     Indication: HORMONE REPLACEMENT THERAPY
     Dosage: 0.625 MG
     Dates: start: 19920101, end: 19960601
  5. PREMPRO [Suspect]
     Indication: HORMONE REPLACEMENT THERAPY
     Dosage: 0.625/2.5 MG
     Dates: start: 19960601, end: 19990101

REACTIONS (1)
  - BREAST CANCER FEMALE [None]
